FAERS Safety Report 9482673 (Version 2)
Quarter: 2014Q2

REPORT INFORMATION
  Report Type: Spontaneous
  Country: IT (occurrence: IT)
  Receive Date: 20130828
  Receipt Date: 20140409
  Transmission Date: 20141212
  Serious: Yes (Other)
  Sender: FDA-Public Use
  Company Number: IT-009507513-1308ITA010539

PATIENT
  Age: 33 Year
  Sex: Female

DRUGS (3)
  1. NUVARING [Suspect]
     Indication: CONTRACEPTION
     Dosage: 1 (DOSE) UNIT
     Route: 067
     Dates: start: 20130623
  2. TACHIPIRINA [Concomitant]
     Dosage: UNK
     Dates: start: 20130706, end: 20130706
  3. OKI [Concomitant]
     Dosage: UNK
     Dates: start: 20130706, end: 20130706

REACTIONS (4)
  - Conjunctivitis [Recovered/Resolved]
  - Hypersensitivity [Recovered/Resolved]
  - Pruritus [Recovered/Resolved]
  - Rash generalised [Recovered/Resolved]
